FAERS Safety Report 8772784 (Version 6)
Quarter: 2013Q3

REPORT INFORMATION
  Report Type: Spontaneous
  Country: US (occurrence: US)
  Receive Date: 20120907
  Receipt Date: 20130801
  Transmission Date: 20140515
  Serious: Yes (Other)
  Sender: FDA-Public Use
  Company Number: US-009507513-1208USA009369

PATIENT
  Sex: Male

DRUGS (8)
  1. PEG-INTRON [Suspect]
     Indication: HEPATITIS C
     Dosage: UNK
     Dates: start: 20120907, end: 20120914
  2. PEG-INTRON [Suspect]
     Dosage: UNK
     Dates: start: 20040101, end: 20041101
  3. REBETOL [Suspect]
     Indication: HEPATITIS C
     Dosage: UNK
     Route: 048
     Dates: start: 20120817, end: 20130718
  4. REBETOL [Suspect]
     Dosage: UNK
     Route: 048
     Dates: start: 20040101, end: 20041101
  5. REBETOL [Suspect]
     Dosage: UNK
  6. VICTRELIS [Suspect]
     Indication: HEPATITIS C
     Dosage: UNK
     Route: 048
     Dates: start: 20120914, end: 20130718
  7. PEGASYS [Suspect]
     Indication: HEPATITIS C
     Dosage: UNK
     Dates: start: 20120817, end: 20120831
  8. PEGASYS [Suspect]
     Dosage: UNK
     Dates: start: 20120921, end: 20130718

REACTIONS (21)
  - Hypersensitivity [Unknown]
  - Injection site erythema [Unknown]
  - Application site pruritus [Unknown]
  - Insomnia [Unknown]
  - Dysgeusia [Unknown]
  - Dermatitis allergic [Unknown]
  - Injection site vesicles [Unknown]
  - Anaemia [Unknown]
  - Injection site vesicles [Unknown]
  - No therapeutic response [Unknown]
  - Cough [Unknown]
  - Fatigue [Unknown]
  - Injection site reaction [Unknown]
  - Rash [Unknown]
  - Dyspnoea [Unknown]
  - Rash [Unknown]
  - Memory impairment [Unknown]
  - Alopecia [Unknown]
  - Fatigue [Unknown]
  - Influenza [Unknown]
  - Dysgeusia [Unknown]
